FAERS Safety Report 18545225 (Version 2)
Quarter: 2020Q4

REPORT INFORMATION
  Report Type: Report from Study
  Country: US (occurrence: US)
  Receive Date: 20201125
  Receipt Date: 20201209
  Transmission Date: 20210114
  Serious: Yes (Hospitalization, Other)
  Sender: FDA-Public Use
  Company Number: US-SHIRE-US202032486

PATIENT
  Sex: Female

DRUGS (3)
  1. TEDUGLUTIDE [Suspect]
     Active Substance: TEDUGLUTIDE
     Indication: SHORT-BOWEL SYNDROME
     Dosage: 0.310 MILLILITER, 1X/DAY:QD
     Dates: start: 20200620
  2. TEDUGLUTIDE [Suspect]
     Active Substance: TEDUGLUTIDE
     Dosage: 0.310 MILLILITER, QD
     Route: 058
     Dates: start: 20200626
  3. TEDUGLUTIDE [Suspect]
     Active Substance: TEDUGLUTIDE
     Dosage: 3.107 MILLILITER, QD
     Route: 058
     Dates: start: 20180905

REACTIONS (2)
  - Vascular device infection [Unknown]
  - Dehydration [Unknown]
